FAERS Safety Report 6424617-8 (Version None)
Quarter: 2009Q4

REPORT INFORMATION
  Report Type: 
  Country: None (occurrence: None)
  Receive Date: 20091103
  Receipt Date: 20091028
  Transmission Date: 20100525
  Serious: Yes (Other)
  Sender: FDA-Public Use
  Company Number: PHHY2009GB47395

PATIENT
  Sex: Male
  Weight: 74 kg

DRUGS (2)
  1. TERBINAFINE HCL [Suspect]
     Indication: ONYCHOMYCOSIS
     Dosage: 250 MG, UNK
     Route: 048
     Dates: start: 20090720, end: 20090916
  2. ASPIRIN [Concomitant]
     Indication: ATRIAL FIBRILLATION
     Dosage: 75 MG, UNK
     Route: 048

REACTIONS (11)
  - ABDOMINAL PAIN UPPER [None]
  - AGEUSIA [None]
  - ASTHENOPIA [None]
  - BLOOD AMYLASE INCREASED [None]
  - DIZZINESS [None]
  - DYSPNOEA [None]
  - EYE PAIN [None]
  - GASTROINTESTINAL SOUNDS ABNORMAL [None]
  - HEADACHE [None]
  - LETHARGY [None]
  - NAUSEA [None]
